FAERS Safety Report 8796233 (Version 1)
Quarter: 2012Q4

REPORT INFORMATION
  Report Type: 
  Country: DE (occurrence: DE)
  Receive Date: 20120920
  Receipt Date: 20120920
  Transmission Date: 20130627
  Serious: Yes (Congenital Anomaly, Other)
  Sender: FDA-Public Use
  Company Number: DE-MYLANLABS-2012S1018502

PATIENT
  Age: 0 Year
  Sex: Female
  Weight: 2.95 kg

DRUGS (4)
  1. LAMOTRIGINE [Suspect]
     Dosage: 300 [mg/d ]/ gw 10-11: 225mg/d; gw  10-12: 250mg/d; gw 12-13: 275 mg/; gw 13-15: 300mg/d
     Route: 064
     Dates: end: 20111202
  2. VIMPAT [Suspect]
     Dosage: 250 [mg/d ]/ gw 10-11: 250mg/d; gw 11-12: 200mg/d; gw 12-13:150mg/d; gw 13-14:100mg/d; gw 14-15: 50m
     Route: 064
     Dates: end: 20111202
  3. ZEBINIX [Concomitant]
     Dosage: 0-4.5 GESTATIONAL WEEK
     Route: 064
  4. FOLIO FORTE [Concomitant]
     Indication: PROPHYLAXIS OF NEURAL TUBE DEFECT
     Dosage: 8.3-41 GESTATIONAL WEEK
     Route: 064

REACTIONS (4)
  - Atrial septal defect [Recovered/Resolved]
  - Exposure during pregnancy [Recovered/Resolved]
  - Directional Doppler flow tests abnormal [Recovered/Resolved]
  - Small for dates baby [Unknown]
